FAERS Safety Report 7728364-1 (Version None)
Quarter: 2011Q3

REPORT INFORMATION
  Report Type: 
  Country: None (occurrence: None)
  Receive Date: 20110905
  Receipt Date: 20110901
  Transmission Date: 20111222
  Serious: Yes (Other)
  Sender: FDA-Public Use
  Company Number: PHEH2009US02559

PATIENT
  Sex: Male

DRUGS (29)
  1. ALKERAN [Concomitant]
  2. PROMETHAZINE [Concomitant]
  3. DEXAMETHASONE [Concomitant]
  4. DEMEROL [Concomitant]
     Dosage: 50 MG, UNK
  5. DIPHENHYDRAMINE HYDROCHLORIDE [Concomitant]
     Dosage: 25 MG, UNK
     Route: 048
     Dates: start: 20081210, end: 20090217
  6. BIAXIN [Concomitant]
  7. ACETAMINOPHEN [Concomitant]
     Dosage: 650 MG, UNK
  8. OXYCONTIN [Concomitant]
     Dosage: 20 MG, Q12H
     Route: 048
  9. TYLENOL-500 [Concomitant]
     Dosage: 325 MG, UNK
     Route: 048
  10. ZOMETA [Suspect]
     Dosage: UNK
     Dates: start: 20020206
  11. VELCADE [Concomitant]
  12. WARFARIN SODIUM [Concomitant]
     Dosage: 1 MG, UNK
     Route: 048
     Dates: start: 20080425, end: 20090217
  13. DECADRON [Concomitant]
  14. MELPHALAN HYDROCHLORIDE [Concomitant]
     Dosage: 4 MG, UNK
     Route: 048
  15. FENTANYL-100 [Concomitant]
  16. MORPHINE [Concomitant]
  17. CYANOCOBALAMIN [Concomitant]
     Dosage: UNK
  18. REVLIMID [Concomitant]
     Dosage: 25 MG, UNK
     Dates: start: 20060417
  19. AREDIA [Suspect]
     Dosage: UNK
     Dates: start: 19960604
  20. PROCRIT [Concomitant]
  21. DIAZEPAM [Concomitant]
  22. PROCHLORPERAZINE [Concomitant]
     Dosage: 10 MG, UNK
     Route: 048
  23. MEPRON [Concomitant]
  24. THALIDOMIDE [Concomitant]
  25. INSULIN [Concomitant]
  26. FAMOTIDINE [Concomitant]
  27. PAMIDRONATE DISODIUM [Concomitant]
     Dosage: 90 MG, UNK
  28. ROXANOL [Concomitant]
  29. CEPHALEXIN [Concomitant]
     Dosage: 500 MG, UNK
     Route: 048
     Dates: start: 20070910, end: 20070920

REACTIONS (19)
  - PAIN [None]
  - CYST [None]
  - OSTEOPOROSIS [None]
  - SPINAL COMPRESSION FRACTURE [None]
  - DISABILITY [None]
  - EPISTAXIS [None]
  - OSTEOLYSIS [None]
  - ANXIETY [None]
  - TOOTH DISORDER [None]
  - DYSPHAGIA [None]
  - NEUROPATHY PERIPHERAL [None]
  - TOOTHACHE [None]
  - LUNG DISORDER [None]
  - ANHEDONIA [None]
  - STOMATITIS [None]
  - OSTEONECROSIS OF JAW [None]
  - INJURY [None]
  - GINGIVAL SWELLING [None]
  - VISION BLURRED [None]
